FAERS Safety Report 6415718-9 (Version None)
Quarter: 2009Q4

REPORT INFORMATION
  Report Type: 
  Country: None (occurrence: None)
  Receive Date: 20091027
  Receipt Date: 20091014
  Transmission Date: 20100525
  Serious: Yes (Other)
  Sender: FDA-Public Use
  Company Number: GR-PFIZER INC-2009283383

PATIENT
  Age: 78 Year

DRUGS (3)
  1. GEODON [Suspect]
     Dosage: UNK
     Route: 048
     Dates: start: 20060101
  2. CENTRAX [Concomitant]
     Dosage: UNK
  3. ENBREL [Concomitant]
     Dosage: UNK

REACTIONS (13)
  - ANXIETY [None]
  - CARDIAC FAILURE [None]
  - DRY MOUTH [None]
  - FATIGUE [None]
  - GAIT DISTURBANCE [None]
  - HEPATIC ENZYME INCREASED [None]
  - LOSS OF CONSCIOUSNESS [None]
  - NERVOUSNESS [None]
  - PALPITATIONS [None]
  - PSORIASIS [None]
  - RESPIRATORY DISORDER [None]
  - RESPIRATORY TRACT INFECTION [None]
  - VISUAL IMPAIRMENT [None]
